FAERS Safety Report 5154109-8 (Version None)
Quarter: 2006Q4

REPORT INFORMATION
  Report Type: 
  Country: None (occurrence: None)
  Receive Date: 20061120
  Receipt Date: 20060906
  Transmission Date: 20070319
  Serious: Yes (Hospitalization, Disabling, Other)
  Sender: FDA-Public Use
  Company Number: US-MERCK-0609USA01013

PATIENT
  Age: 75 Year
  Sex: Female

DRUGS (2)
  1. FOSAMAX [Suspect]
     Route: 048
     Dates: start: 20040101
  2. MEVACOR [Concomitant]
     Route: 048

REACTIONS (2)
  - LYME DISEASE [None]
  - THERAPY NON-RESPONDER [None]
